FAERS Safety Report 17086153 (Version 1)
Quarter: 2019Q4

REPORT INFORMATION
  Report Type: Spontaneous
  Country: US (occurrence: US)
  Receive Date: 20191128
  Receipt Date: 20191128
  Transmission Date: 20200122
  Serious: Yes (Other)
  Sender: FDA-Public Use
  Company Number: US-UCBSA-2018037524

PATIENT
  Age: 44 Year
  Sex: Female
  Weight: 71 kg

DRUGS (5)
  1. TIZANIDINE. [Concomitant]
     Active Substance: TIZANIDINE
     Indication: NECK PAIN
     Dosage: 4 MG, ONCE DAILY (QD)
     Route: 048
     Dates: start: 2010
  2. LAMOTRIGINE. [Suspect]
     Active Substance: LAMOTRIGINE
     Indication: PRODUCT USED FOR UNKNOWN INDICATION
     Dosage: UNK
  3. IBUPROFEN. [Concomitant]
     Active Substance: IBUPROFEN
     Indication: NECK PAIN
     Dosage: 400 MG, AS NEEDED (PRN)
     Route: 048
     Dates: start: 2010
  4. VIMPAT [Suspect]
     Active Substance: LACOSAMIDE
     Indication: EPILEPSY
     Dosage: 150 MG, 2X/DAY (BID)
     Route: 048
     Dates: start: 201705
  5. CLONAZEPAM. [Concomitant]
     Active Substance: CLONAZEPAM
     Indication: ANXIETY
     Dosage: 0.5 MG, 2X/DAY (BID)
     Route: 048
     Dates: start: 2010

REACTIONS (1)
  - Stevens-Johnson syndrome [Recovered/Resolved]

NARRATIVE: CASE EVENT DATE: 201706
